FAERS Safety Report 14636597 (Version 1)
Quarter: 2018Q1

REPORT INFORMATION
  Report Type: Spontaneous
  Country: PL (occurrence: PL)
  Receive Date: 20180314
  Receipt Date: 20180314
  Transmission Date: 20180509
  Serious: Yes (Disabling, Other)
  Sender: FDA-Public Use
  Company Number: PL-BAYER-2018-043084

PATIENT
  Sex: Female
  Weight: 65 kg

DRUGS (2)
  1. MIRENA [Suspect]
     Active Substance: LEVONORGESTREL
     Dosage: 20 MCG/24HR, CONT
     Route: 015
     Dates: start: 201703
  2. MIRENA [Suspect]
     Active Substance: LEVONORGESTREL

REACTIONS (5)
  - Ruptured ectopic pregnancy [None]
  - Stress [None]
  - Ectopic pregnancy with contraceptive device [None]
  - Internal haemorrhage [None]
  - Drug ineffective [None]

NARRATIVE: CASE EVENT DATE: 2018
